FAERS Safety Report 9660115 (Version 1)
Quarter: 2013Q4

REPORT INFORMATION
  Report Type: Spontaneous
  Country: US (occurrence: US)
  Receive Date: 20131031
  Receipt Date: 20131031
  Transmission Date: 20140711
  Serious: No
  Sender: FDA-Public Use
  Company Number: US-ABBVIE-13P-163-1050772-00

PATIENT
  Sex: Male

DRUGS (2)
  1. BIAXIN [Suspect]
     Indication: PRODUCT USED FOR UNKNOWN INDICATION
  2. BIAXIN [Suspect]

REACTIONS (5)
  - Pruritus [Unknown]
  - Dysgeusia [Unknown]
  - Muscle fatigue [Unknown]
  - Myalgia [Unknown]
  - Musculoskeletal stiffness [Unknown]
